FAERS Safety Report 5667817-7 (Version None)
Quarter: 2008Q1

REPORT INFORMATION
  Report Type: 
  Country: None (occurrence: None)
  Receive Date: 20080315
  Receipt Date: 20080201
  Transmission Date: 20080703
  Serious: No
  Sender: FDA-Public Use
  Company Number: US-ABBOTT-08P-163-0436848-00

PATIENT
  Sex: Male
  Weight: 71.278 kg

DRUGS (4)
  1. HUMIRA [Suspect]
     Indication: CROHN'S DISEASE
     Route: 058
     Dates: start: 20080102, end: 20080102
  2. HUMIRA [Suspect]
     Route: 058
     Dates: start: 20080115, end: 20080115
  3. HUMIRA [Suspect]
     Route: 058
     Dates: start: 20071218, end: 20071218
  4. HUMIRA [Suspect]
     Route: 058
     Dates: start: 20071203, end: 20071203

REACTIONS (1)
  - OVERDOSE [None]
